FAERS Safety Report 9042567 (Version 1)
Quarter: 2013Q1

REPORT INFORMATION
  Report Type: Report from Study
  Country: US (occurrence: US)
  Receive Date: 20130129
  Receipt Date: 20130129
  Transmission Date: 20140127
  Serious: No
  Sender: FDA-Public Use
  Company Number: US-ABBOTT-12P-163-0908770-00

PATIENT
  Sex: Female
  Weight: 73.55 kg

DRUGS (1)
  1. HUMIRA 40 MG/0.8 ML PEN [Suspect]
     Indication: MIXED CONNECTIVE TISSUE DISEASE
     Dates: start: 2005

REACTIONS (5)
  - Menorrhagia [Not Recovered/Not Resolved]
  - Abdominal pain lower [Not Recovered/Not Resolved]
  - Off label use [Unknown]
  - Mixed connective tissue disease [Unknown]
  - Uterine leiomyoma [Unknown]
